FAERS Safety Report 8486849-7 (Version None)
Quarter: 2012Q3

REPORT INFORMATION
  Report Type: 
  Country: None (occurrence: None)
  Receive Date: 20120704
  Receipt Date: 20120622
  Transmission Date: 20120928
  Serious: Yes (Death, Hospitalization, Other)
  Sender: FDA-Public Use
  Company Number: US-ACCORD-013773

PATIENT
  Age: 59 Year
  Sex: Male

DRUGS (6)
  1. SIROLIMUS [Suspect]
  2. METHYLPREDNISOLONE [Suspect]
     Indication: IMMUNOSUPPRESSION
  3. IDARUBICIN HCL [Suspect]
     Dosage: 12 MG/M2/DAY FOR THREE DAYS
  4. TACROLIMUS [Suspect]
     Indication: IMMUNOSUPPRESSION
  5. MYCOPHENOLATE MOFETIL [Suspect]
     Indication: IMMUNOSUPPRESSION
  6. CYTARABINE [Suspect]
     Dosage: CONTINUOUS IV INFUSION FOR 7 DAYS
     Route: 042

REACTIONS (6)
  - RESPIRATORY FAILURE [None]
  - VIRAL INFECTION [None]
  - SEPTIC SHOCK [None]
  - ACUTE MYELOID LEUKAEMIA [None]
  - NEUTROPENIC SEPSIS [None]
  - PNEUMONIA [None]
